FAERS Safety Report 20916814 (Version 2)
Quarter: 2022Q2

REPORT INFORMATION
  Report Type: Spontaneous
  Country: US (occurrence: US)
  Receive Date: 20220605
  Receipt Date: 20220616
  Transmission Date: 20220720
  Serious: Yes (Hospitalization, Other)
  Sender: FDA-Public Use
  Company Number: US-BRISTOL-MYERS SQUIBB COMPANY-2022-040536

PATIENT
  Age: 64 Year
  Sex: Male
  Weight: 138.8 kg

DRUGS (14)
  1. REVLIMID [Suspect]
     Active Substance: LENALIDOMIDE
     Indication: Plasma cell myeloma
     Route: 048
     Dates: start: 20220223
  2. REVLIMID [Suspect]
     Active Substance: LENALIDOMIDE
     Dosage: 7 DAYS OFF
     Route: 048
     Dates: end: 20220328
  3. TAMSULOSIN HYDROCHLORIDE [Concomitant]
     Active Substance: TAMSULOSIN HYDROCHLORIDE
     Indication: Product used for unknown indication
  4. AMLODIPINE-VALASARTAN [Concomitant]
     Dosage: 10-320 MG
  5. ATORVASTATIN [Concomitant]
     Active Substance: ATORVASTATIN
  6. CARVEDILOL [Concomitant]
     Active Substance: CARVEDILOL
  7. DEXAMETHASONE [Concomitant]
     Active Substance: DEXAMETHASONE
  8. LEVOTHYROXINE [Concomitant]
     Active Substance: LEVOTHYROXINE
  9. TORSEMIDE [Concomitant]
     Active Substance: TORSEMIDE
  10. DARZALEX [Concomitant]
     Active Substance: DARATUMUMAB
     Dosage: 100 MG/5 ML , 1 VIAL
  11. LANTUS SOLOSTAR [Concomitant]
     Active Substance: INSULIN GLARGINE
     Dosage: PEN
  12. Novolog Elexpen [Concomitant]
  13. PROCRIT [Concomitant]
     Active Substance: ERYTHROPOIETIN
     Dosage: 10,000 U/ML 1 ML SD VIAL
  14. VELCADE [Concomitant]
     Active Substance: BORTEZOMIB
     Dosage: 1 VIAL

REACTIONS (2)
  - Renal disorder [Unknown]
  - Cardiac failure congestive [Unknown]

NARRATIVE: CASE EVENT DATE: 20220307
